FAERS Safety Report 5954205-9 (Version None)
Quarter: 2008Q4

REPORT INFORMATION
  Report Type: 
  Country: None (occurrence: None)
  Receive Date: 20081113
  Receipt Date: 20081029
  Transmission Date: 20090506
  Serious: Yes (Other)
  Sender: FDA-Public Use
  Company Number: 8029611

PATIENT
  Age: 22 Year
  Sex: Male

DRUGS (6)
  1. KEPPRA [Suspect]
     Indication: EPILEPSY
     Dosage: 1500 MG /D PO
     Route: 048
     Dates: start: 20060101
  2. KEPPRA [Suspect]
     Indication: PROPHYLAXIS
     Dosage: 1500 MG /D PO
     Route: 048
     Dates: start: 20060101
  3. KEPPRA [Suspect]
     Indication: EPILEPSY
     Dosage: 1000 MG /D PO
     Route: 048
  4. KEPPRA [Suspect]
     Indication: PROPHYLAXIS
     Dosage: 1000 MG /D PO
     Route: 048
  5. KEPPRA [Suspect]
     Indication: EPILEPSY
     Dosage: 500 MG 4/D PO
     Route: 048
  6. KEPPRA [Suspect]
     Indication: PROPHYLAXIS
     Dosage: 500 MG 4/D PO
     Route: 048

REACTIONS (4)
  - APHASIA [None]
  - GRAND MAL CONVULSION [None]
  - IRRITABILITY [None]
  - JAUNDICE [None]
